FAERS Safety Report 8701688 (Version 2)
Quarter: 2013Q4

REPORT INFORMATION
  Report Type: Spontaneous
  Country: US (occurrence: US)
  Receive Date: 20120803
  Receipt Date: 20131105
  Transmission Date: 20140711
  Serious: Yes (Hospitalization)
  Sender: FDA-Public Use
  Company Number: US-009507513-1207USA010757

PATIENT
  Age: 81 Year
  Sex: Male

DRUGS (1)
  1. ZOCOR [Suspect]
     Dosage: 80 MG, QD
     Route: 048

REACTIONS (6)
  - Blood test abnormal [Unknown]
  - Abasia [Unknown]
  - Muscular weakness [Unknown]
  - Coronary artery occlusion [Unknown]
  - Muscle disorder [Unknown]
  - Liver disorder [Unknown]
